FAERS Safety Report 13378259 (Version 1)
Quarter: 2017Q1

REPORT INFORMATION
  Report Type: Spontaneous
  Country: US (occurrence: US)
  Receive Date: 20170328
  Receipt Date: 20170328
  Transmission Date: 20170429
  Serious: No
  Sender: FDA-Public Use
  Company Number: US-ASTRAZENECA-2017SE30496

PATIENT
  Age: 59 Year
  Sex: Female
  Weight: 138.8 kg

DRUGS (3)
  1. FASLODEX [Suspect]
     Active Substance: FULVESTRANT
     Dosage: MONTHLY
     Route: 030
     Dates: start: 201612
  2. XARELTO [Concomitant]
     Active Substance: RIVAROXABAN
     Route: 065
  3. XGEVA [Concomitant]
     Active Substance: DENOSUMAB
     Route: 065

REACTIONS (4)
  - Injection site extravasation [Unknown]
  - Injection site mass [Unknown]
  - Injection site nodule [Unknown]
  - Injection site bruising [Unknown]
